FAERS Safety Report 12779668 (Version 4)
Quarter: 2016Q4

REPORT INFORMATION
  Report Type: Spontaneous
  Country: US (occurrence: US)
  Receive Date: 20160926
  Receipt Date: 20161123
  Transmission Date: 20170207
  Serious: No
  Sender: FDA-Public Use
  Company Number: US-PFIZER INC-2016236869

PATIENT
  Age: 76 Year
  Sex: Female
  Weight: 95.24 kg

DRUGS (24)
  1. ARTHROTEC [Suspect]
     Active Substance: DICLOFENAC SODIUM\MISOPROSTOL
     Indication: INFLAMMATION
     Dosage: 1 DF, 2X/DAY (MISOPROSTOL 200 MG, DICLOFENAC SODIUM 75 MG) TWO A DAY
     Route: 048
  2. PROBIOTIC [Concomitant]
     Active Substance: PROBIOTICS NOS
     Dosage: UNK, 1X/DAY
     Route: 048
  3. VITAMIN D3 [Concomitant]
     Active Substance: CHOLECALCIFEROL
     Dosage: 2000 IU, 2X/DAY
     Route: 048
  4. FISH OIL [Concomitant]
     Active Substance: FISH OIL
     Dosage: 1200 MG, 1X/DAY
     Route: 048
  5. ARTHROTEC [Suspect]
     Active Substance: DICLOFENAC SODIUM\MISOPROSTOL
     Dosage: UNK
     Dates: start: 2000
  6. FUROSEMIDE. [Concomitant]
     Active Substance: FUROSEMIDE
     Dosage: 80 MG, 1X/DAY (2 QD)
     Route: 048
  7. CALCIUM [Concomitant]
     Active Substance: CALCIUM
     Dosage: 1200 MG, 1X/DAY
     Route: 048
  8. GENTEAL MILD [Concomitant]
     Active Substance: HYPROMELLOSE 2910 (4000 MPA.S)
     Dosage: UNK, 1X/DAY (QHS)
  9. MAGNESIUM [Concomitant]
     Active Substance: MAGNESIUM
     Dosage: 500 MG, 1X/DAY
     Route: 048
  10. TEARS [Concomitant]
     Dosage: UNK (OU, 3-4 TIMES QD)
  11. ASA [Concomitant]
     Active Substance: ASPIRIN
     Dosage: 81 MG, 1X/DAY
     Route: 048
  12. PREDNISONE. [Concomitant]
     Active Substance: PREDNISONE
     Dosage: 10 MG, UNK
  13. ZADITOR [Concomitant]
     Active Substance: KETOTIFEN FUMARATE
     Dosage: 1 GTT, 1X/DAY
  14. ARTHROTEC [Suspect]
     Active Substance: DICLOFENAC SODIUM\MISOPROSTOL
     Dosage: 1 DF, DAILY
     Route: 048
  15. LYRICA [Suspect]
     Active Substance: PREGABALIN
     Dosage: 50 MG, 1X/DAY
     Route: 048
     Dates: start: 20160208
  16. DILTIAZEM HCL [Concomitant]
     Active Substance: DILTIAZEM HYDROCHLORIDE
     Dosage: 60 MG, 2X/DAY
     Route: 048
  17. BIOTIN [Concomitant]
     Active Substance: BIOTIN
     Dosage: 10000 UG, 1X/DAY
     Route: 048
  18. LUTEIN [Concomitant]
     Active Substance: LUTEIN
     Dosage: UNK, 1X/DAY
     Route: 048
  19. LEVOFLOXACIN. [Concomitant]
     Active Substance: LEVOFLOXACIN
     Dosage: 750 MG, 1X/DAY
     Route: 048
  20. THEOPHYLLINE [Concomitant]
     Active Substance: THEOPHYLLINE ANHYDROUS
     Dosage: 200 MG, 2X/DAY
     Route: 048
  21. DEXILANT [Concomitant]
     Active Substance: DEXLANSOPRAZOLE
     Dosage: 60 MG, 1X/DAY
     Route: 048
  22. NIACIN. [Concomitant]
     Active Substance: NIACIN
     Dosage: 500 MG, 2X/DAY
     Route: 048
  23. VALTREX [Concomitant]
     Active Substance: VALACYCLOVIR HYDROCHLORIDE
     Dosage: 16 MG, ALTERNATE DAY (QOD)
     Route: 048
  24. IPRATROPIUM BROMIDE AND ALBUTEROL SULFATE [Concomitant]
     Active Substance: ALBUTEROL SULFATE\IPRATROPIUM BROMIDE
     Dosage: UNK (IPRATROPIUM BROMIDE 0.5 MG, SALBUTAMOL SULFATE 2.5 MG)
     Route: 055

REACTIONS (1)
  - Malaise [Unknown]
